FAERS Safety Report 4335279-8 (Version None)
Quarter: 2004Q2

REPORT INFORMATION
  Report Type: 
  Country: None (occurrence: None)
  Receive Date: 20040406
  Receipt Date: 20040123
  Transmission Date: 20050107
  Serious: Yes (Other)
  Sender: FDA-Public Use
  Company Number: 345976

PATIENT
  Sex: Male

DRUGS (1)
  1. FUZEON [Suspect]
     Indication: HIV INFECTION
     Dosage: 90 MG  2 PER DAY  SUBCUTANEOUS
     Route: 058
     Dates: start: 20030601

REACTIONS (7)
  - INJECTION SITE PAIN [None]
  - INJECTION SITE REACTION [None]
  - INJECTION SITE SWELLING [None]
  - MEDICATION ERROR [None]
  - NO ADVERSE EFFECT [None]
  - SKIN IRRITATION [None]
  - WEIGHT INCREASED [None]
